FAERS Safety Report 16132674 (Version 2)
Quarter: 2022Q4

REPORT INFORMATION
  Report Type: Report from Study
  Country: US (occurrence: None)
  Receive Date: 20190329
  Receipt Date: 20221109
  Transmission Date: 20230113
  Serious: Yes (Death)
  Sender: FDA-Public Use
  Company Number: US-MERCK KGAA-9081832

PATIENT
  Age: 72 Year
  Sex: Female

DRUGS (2)
  1. REBIF [Suspect]
     Active Substance: INTERFERON BETA-1A
     Indication: Multiple sclerosis
     Route: 058
     Dates: start: 20120301
  2. REBIF [Suspect]
     Active Substance: INTERFERON BETA-1A
     Dosage: THE PATIENT USED REBIF PREFILLED SYRINGE.
     Route: 058
     Dates: start: 20170922

REACTIONS (2)
  - Renal failure [Fatal]
  - Hypertension [Unknown]

NARRATIVE: CASE EVENT DATE: 20190319
